FAERS Safety Report 9912587 (Version 1)
Quarter: 2014Q1

REPORT INFORMATION
  Report Type: Spontaneous
  Country: HK (occurrence: None)
  Receive Date: 20140214
  Receipt Date: 20140214
  Transmission Date: 20141002
  Serious: Yes (Death)
  Sender: FDA-Public Use
  Company Number: 2014P1001090

PATIENT
  Age: 58 Year
  Sex: Female

DRUGS (5)
  1. HEPARIN [Suspect]
     Indication: MEDICAL DEVICE COMPLICATION
  2. ENOXAPARIN [Suspect]
     Indication: DEEP VEIN THROMBOSIS
  3. LISINOPRIL [Concomitant]
  4. METFORMIN [Concomitant]
  5. INSULIN ISOPHANE HUMAN [Concomitant]

REACTIONS (6)
  - Deep vein thrombosis [None]
  - Pelvic venous thrombosis [None]
  - Heparin-induced thrombocytopenia [None]
  - Cerebral artery thrombosis [None]
  - Ischaemic stroke [None]
  - General physical health deterioration [None]
